FAERS Safety Report 10086532 (Version 2)
Quarter: 2016Q2

REPORT INFORMATION
  Report Type: Spontaneous
  Country: US (occurrence: US)
  Receive Date: 20140418
  Receipt Date: 20160429
  Transmission Date: 20160815
  Serious: No
  Sender: FDA-Public Use
  Company Number: US-PFIZER INC-2014106421

PATIENT
  Age: 54 Year
  Sex: Male
  Weight: 239 kg

DRUGS (2)
  1. LYRICA [Suspect]
     Active Substance: PREGABALIN
     Indication: NEUROPATHY PERIPHERAL
     Dosage: {100MG 2 TID
  2. LYRICA [Suspect]
     Active Substance: PREGABALIN
     Dosage: 200 MG, 3X/DAY (100MG AT 2 ORAL 3 TIMES/DAY)
     Route: 048
     Dates: start: 20160322

REACTIONS (1)
  - Intervertebral disc protrusion [Unknown]
